FAERS Safety Report 4506545-8 (Version None)
Quarter: 2004Q4

REPORT INFORMATION
  Report Type: 
  Country: None (occurrence: None)
  Receive Date: 20041122
  Receipt Date: 20041110
  Transmission Date: 20050328
  Serious: Yes (Hospitalization)
  Sender: FDA-Public Use
  Company Number: 200418834US

PATIENT
  Sex: Female
  Weight: 45.5 kg

DRUGS (10)
  1. LASIX [Suspect]
     Route: 048
  2. COUMADIN [Concomitant]
  3. COREG [Concomitant]
     Indication: CARDIAC FAILURE CONGESTIVE
     Route: 048
  4. IMDUR [Concomitant]
     Indication: CARDIAC FAILURE CONGESTIVE
     Route: 048
  5. K-DUR 10 [Concomitant]
     Indication: CARDIAC FAILURE CONGESTIVE
     Route: 048
  6. OXYCONTIN [Concomitant]
     Indication: ARTHRITIS
  7. SYNTHROID [Concomitant]
  8. PREVACID [Concomitant]
  9. ZYPREXA [Concomitant]
  10. LISINOPRIL [Concomitant]
     Dates: start: 20030721

REACTIONS (9)
  - BLOOD CALCIUM DECREASED [None]
  - BLOOD CHLORIDE INCREASED [None]
  - CARDIAC MURMUR [None]
  - CARDIOMEGALY [None]
  - CHEST X-RAY ABNORMAL [None]
  - CREPITATIONS [None]
  - DEHYDRATION [None]
  - INTERNATIONAL NORMALISED RATIO INCREASED [None]
  - RENAL FAILURE ACUTE [None]
